FAERS Safety Report 5201818-8 (Version None)
Quarter: 2006Q4

REPORT INFORMATION
  Report Type: 
  Country: None (occurrence: None)
  Receive Date: 20061002
  Receipt Date: 20051213
  Transmission Date: 20070319
  Serious: Yes (Other)
  Sender: FDA-Public Use
  Company Number: US-JNJFOC-20051201781

PATIENT
  Sex: 0

DRUGS (1)
  1. ULTRACET [Suspect]
     Indication: DRUG USE FOR UNKNOWN INDICATION

REACTIONS (2)
  - DRUG ABUSER [None]
  - DRUG WITHDRAWAL SYNDROME [None]
